FAERS Safety Report 10913486 (Version 1)
Quarter: 2015Q1

REPORT INFORMATION
  Report Type: Spontaneous
  Country: NO (occurrence: NO)
  Receive Date: 20150313
  Receipt Date: 20150313
  Transmission Date: 20150721
  Serious: Yes (Death)
  Sender: FDA-Public Use
  Company Number: NO-BAYER-2015-032452

PATIENT
  Age: 86 Year
  Sex: Male

DRUGS (2)
  1. CIPROXIN 500 MG FILMCOATED TABLETS [Suspect]
     Active Substance: CIPROFLOXACIN
     Indication: URINARY TRACT INFECTION
     Dosage: UNK
  2. MAREVAN [Interacting]
     Active Substance: WARFARIN SODIUM
     Route: 048

REACTIONS (2)
  - Shock haemorrhagic [Fatal]
  - Melaena [Fatal]
